FAERS Safety Report 5086769-4 (Version None)
Quarter: 2006Q3

REPORT INFORMATION
  Report Type: 
  Country: None (occurrence: None)
  Receive Date: 20060823
  Receipt Date: 20060626
  Transmission Date: 20061208
  Serious: Yes (Hospitalization)
  Sender: FDA-Public Use
  Company Number: 2006SE03566

PATIENT
  Age: 71 Year
  Sex: Female
  Weight: 51 kg

DRUGS (21)
  1. BLOPRESS TABLETS 4 [Suspect]
     Indication: HYPERTENSION
     Route: 048
     Dates: start: 20011213, end: 20030402
  2. BLOPRESS TABLETS 4 [Suspect]
     Route: 048
     Dates: start: 20030403, end: 20060613
  3. ALLOID G [Suspect]
     Indication: GASTRIC ULCER
     Route: 048
     Dates: start: 20060413
  4. ALLOID G [Suspect]
     Route: 048
     Dates: start: 20060602
  5. CALTAN [Concomitant]
     Indication: HYPOCALCAEMIA
     Route: 048
     Dates: start: 20060417
  6. OMEPRAZOLE [Concomitant]
     Indication: GASTRIC ULCER
     Route: 048
     Dates: start: 20060413, end: 20060615
  7. DEPAS [Concomitant]
     Indication: ANXIETY DISORDER
     Route: 048
     Dates: start: 20031012
  8. GASTROM [Concomitant]
     Indication: GASTRIC ULCER
     Route: 048
     Dates: start: 20060413
  9. GASTROM [Concomitant]
     Route: 048
     Dates: start: 20060602
  10. LASIX [Concomitant]
     Indication: RENAL FAILURE CHRONIC
     Route: 048
     Dates: start: 20060315
  11. GLAKAY [Concomitant]
     Indication: OSTEOPOROSIS
     Route: 048
     Dates: start: 20050316
  12. THYRADIN S [Concomitant]
     Indication: HYPOTHYROIDISM
     Route: 048
     Dates: start: 20030403
  13. PREDONINE [Concomitant]
     Indication: RHEUMATOID ARTHRITIS
     Route: 048
     Dates: start: 20030610
  14. CINAL [Concomitant]
     Indication: VITAMIN C DEFICIENCY
     Route: 048
     Dates: start: 20030610
  15. POSTERISAN [Concomitant]
     Route: 048
  16. LAXOBERON [Concomitant]
     Indication: CONSTIPATION
     Route: 048
     Dates: start: 20060417
  17. CLINORIL [Concomitant]
     Indication: BACK PAIN
     Route: 048
     Dates: start: 20060602
  18. VOLTAREN [Concomitant]
     Indication: BACK PAIN
     Route: 054
     Dates: start: 20060602
  19. EPOGEN [Concomitant]
     Indication: NEPHROGENIC ANAEMIA
     Route: 042
  20. BLUTAL [Concomitant]
     Route: 042
  21. HEPARIN [Concomitant]
     Route: 065

REACTIONS (1)
  - ANAPHYLACTIC REACTION [None]
